FAERS Safety Report 6009248-6 (Version None)
Quarter: 2008Q4

REPORT INFORMATION
  Report Type: 
  Country: None (occurrence: None)
  Receive Date: 20081217
  Receipt Date: 20080129
  Transmission Date: 20090506
  Serious: No
  Sender: FDA-Public Use
  Company Number: US-AMGEN-KDL256320

PATIENT
  Sex: Female
  Weight: 69.5 kg

DRUGS (17)
  1. ENBREL [Suspect]
     Indication: RHEUMATOID ARTHRITIS
     Route: 058
     Dates: start: 20041015
  2. ENBREL [Suspect]
     Indication: ANKYLOSING SPONDYLITIS
  3. PAXIL [Concomitant]
  4. SYNTHROID [Concomitant]
  5. CALCIUM WITH VITAMIN D [Concomitant]
  6. MULTI-VITAMINS [Concomitant]
  7. GLUCOSAMINE [Concomitant]
  8. MIRALAX [Concomitant]
  9. FORTEO [Concomitant]
  10. ULTRACET [Concomitant]
  11. DURAGESIC-100 [Concomitant]
  12. ALEVE [Concomitant]
  13. ZYRTEC [Concomitant]
  14. LYRICA [Concomitant]
  15. PRILOSEC [Concomitant]
  16. LIDOCAINE [Concomitant]
  17. TRIAMCINOLONE [Concomitant]

REACTIONS (12)
  - INJECTION SITE ERYTHEMA [None]
  - INJECTION SITE PAIN [None]
  - INJECTION SITE PRURITUS [None]
  - INJECTION SITE REACTION [None]
  - INJECTION SITE SWELLING [None]
  - LICHEN PLANUS [None]
  - LIPOMA [None]
  - ORAL CANDIDIASIS [None]
  - ORAL DISCOMFORT [None]
  - PAPILLOMA [None]
  - TOOTH ABSCESS [None]
  - WEIGHT DECREASED [None]
